FAERS Safety Report 15138925 (Version 2)
Quarter: 2018Q3

REPORT INFORMATION
  Report Type: Spontaneous
  Country: AT (occurrence: AT)
  Receive Date: 20180713
  Receipt Date: 20180730
  Transmission Date: 20181010
  Serious: Yes (Other)
  Sender: FDA-Public Use
  Company Number: AT-AMGEN-AUTSP2018092189

PATIENT
  Age: 65 Year
  Sex: Female

DRUGS (6)
  1. KYPROLIS [Suspect]
     Active Substance: CARFILZOMIB
     Indication: PRODUCT USED FOR UNKNOWN INDICATION
     Dosage: 27 MG/M2, DAY 1,2,8,9,15,16
     Route: 065
     Dates: start: 201601, end: 201610
  2. KYPROLIS [Suspect]
     Active Substance: CARFILZOMIB
     Dosage: REDUCED DOSE TO 75 % OF FULL DOSE
     Route: 065
     Dates: start: 2017, end: 201710
  3. KYPROLIS [Suspect]
     Active Substance: CARFILZOMIB
     Dosage: 56 MG/M2, UNK (FIRST CYCLE AFTER REINTRODUCTION)
     Route: 065
     Dates: start: 201704, end: 2017
  4. LENALIDOMIDE [Concomitant]
     Active Substance: LENALIDOMIDE
     Dosage: 20 MG, DAY 1,2,8,9,15,16
     Dates: start: 201601, end: 201704
  5. DEXAMETHASONE. [Concomitant]
     Active Substance: DEXAMETHASONE
     Dosage: 25 MG, DAY 1,2,8,9,15,16/ CYCLE III REDUCTION TO 75 %
     Dates: start: 201601, end: 201710
  6. KYPROLIS [Suspect]
     Active Substance: CARFILZOMIB
     Dosage: REDUCED DOSE, ON DAY 1, 2, 8, 9 AND 22
     Route: 065
     Dates: start: 2017, end: 2017

REACTIONS (4)
  - Cardiac failure [Unknown]
  - Haematotoxicity [Unknown]
  - Cardiomyopathy [Recovering/Resolving]
  - Disease progression [Unknown]

NARRATIVE: CASE EVENT DATE: 2017
